FAERS Safety Report 5825430-2 (Version None)
Quarter: 2008Q3

REPORT INFORMATION
  Report Type: 
  Country: None (occurrence: None)
  Receive Date: 20080723
  Receipt Date: 20080708
  Transmission Date: 20090109
  Serious: Yes (Disabling)
  Sender: FDA-Public Use
  Company Number: SPV1-2008-01474

PATIENT
  Age: 34 Year
  Sex: Male
  Weight: 86.2 kg

DRUGS (4)
  1. VYVANSE [Suspect]
     Indication: ATTENTION DEFICIT/HYPERACTIVITY DISORDER
     Dosage: 30 MG, 1X/DAY:QD, ORAL; 60 MG (2 30 MG CAPSULES), ORAL
     Route: 048
     Dates: start: 20080601, end: 20080607
  2. VYVANSE [Suspect]
     Indication: ATTENTION DEFICIT/HYPERACTIVITY DISORDER
     Dosage: 30 MG, 1X/DAY:QD, ORAL; 60 MG (2 30 MG CAPSULES), ORAL
     Route: 048
     Dates: start: 20080608
  3. LAMICTAL [Concomitant]
  4. CLONAZEPAM [Concomitant]

REACTIONS (6)
  - DRUG INEFFECTIVE [None]
  - FEELING JITTERY [None]
  - INSOMNIA [None]
  - LETHARGY [None]
  - SEXUAL DYSFUNCTION [None]
  - WRIST FRACTURE [None]
